FAERS Safety Report 7024772-5 (Version None)
Quarter: 2010Q3

REPORT INFORMATION
  Report Type: 
  Country: None (occurrence: None)
  Receive Date: 20100929
  Receipt Date: 20100916
  Transmission Date: 20110219
  Serious: Yes (Hospitalization, Other)
  Sender: FDA-Public Use
  Company Number: CV20100398

PATIENT
  Age: 23 Year
  Sex: Female

DRUGS (4)
  1. PROPOFOL [Suspect]
     Indication: OESOPHAGOGASTRODUODENOSCOPY
     Dosage: 480 MG (CUMULATIVE DOSE)
     Route: 042
     Dates: start: 20100608
  2. IMERON 400 MCT (IOMEPROL) [Concomitant]
  3. BUSCOPAN [Concomitant]
  4. DORMICUM (NITRAZEPAM) [Concomitant]

REACTIONS (1)
  - HEPATITIS ACUTE [None]
